FAERS Safety Report 7762396-2 (Version None)
Quarter: 2011Q3

REPORT INFORMATION
  Report Type: 
  Country: None (occurrence: None)
  Receive Date: 20110920
  Receipt Date: 20110915
  Transmission Date: 20111222
  Serious: Yes (Other)
  Sender: FDA-Public Use
  Company Number: JP-ROCHE-802437

PATIENT
  Age: 70 Year
  Sex: Male

DRUGS (6)
  1. XELODA [Suspect]
     Indication: LARGE INTESTINE CARCINOMA
     Dosage: DOSAGE UNCERTAIN.
     Route: 048
     Dates: start: 20010201
  2. OXALIPLATIN [Concomitant]
     Dosage: NOTE: DOSAGE IS UNCERTAIN
     Route: 041
     Dates: start: 20110201
  3. EFUDEX [Concomitant]
     Dosage: NOTE: DOSAGE IS UNCERTAIN
     Route: 040
     Dates: start: 20110201
  4. LEUCOVORIN CALCIUM [Concomitant]
     Dosage: NOTE: DOSAGE IS UNCERTAIN
     Route: 041
     Dates: start: 20110201
  5. AVASTIN [Suspect]
     Indication: LARGE INTESTINE CARCINOMA
     Dosage: NOTE: DOSAGE IS UNCERTAIN
     Route: 041
     Dates: start: 20110201
  6. EFUDEX [Concomitant]
     Dosage: NOTE: DOSAGE IS UNCERTAIN
     Route: 040
     Dates: start: 20110201

REACTIONS (1)
  - INTERSTITIAL LUNG DISEASE [None]
